FAERS Safety Report 13628300 (Version 6)
Quarter: 2017Q4

REPORT INFORMATION
  Report Type: Spontaneous
  Country: JP (occurrence: JP)
  Receive Date: 20170608
  Receipt Date: 20171219
  Transmission Date: 20180320
  Serious: Yes (Hospitalization)
  Sender: FDA-Public Use
  Company Number: JP-PFIZER INC-2015180745

PATIENT
  Age: 64 Year
  Sex: Male
  Weight: 65 kg

DRUGS (9)
  1. ALISKIREN [Concomitant]
     Active Substance: ALISKIREN
     Dosage: 75 MG, DAILY
  2. ALISKIREN [Concomitant]
     Active Substance: ALISKIREN
     Dosage: 300 MG, DAILY (INCREASED THE DOSE)
  3. OLMETEC [Suspect]
     Active Substance: OLMESARTAN MEDOXOMIL
     Indication: IDIOPATHIC INTRACRANIAL HYPERTENSION
     Dosage: 20 MG, DAILY
     Route: 048
  4. NICARDIPINE [Suspect]
     Active Substance: NICARDIPINE
     Indication: IDIOPATHIC INTRACRANIAL HYPERTENSION
     Dosage: 2 MG/H
     Route: 041
  5. NIFEDIPINE. [Concomitant]
     Active Substance: NIFEDIPINE
     Dosage: 10 MG, UNK
     Route: 048
  6. NIFEDIPINE. [Concomitant]
     Active Substance: NIFEDIPINE
     Dosage: 60 MG, DAILY
     Route: 048
  7. AMLODIPINE BESILATE [Suspect]
     Active Substance: AMLODIPINE BESYLATE
     Indication: HYPERTENSION
     Dosage: 5 MG, DAILY  (DOSE WAS DECREASED BY HALF)
     Route: 048
  8. ALISKIREN [Concomitant]
     Active Substance: ALISKIREN
     Dosage: 150 MG, ALTERNATE DAY
     Dates: start: 20140111
  9. AMLODIPINE BESILATE [Suspect]
     Active Substance: AMLODIPINE BESYLATE
     Indication: IDIOPATHIC INTRACRANIAL HYPERTENSION
     Dosage: 10 MG, DAILY
     Route: 048

REACTIONS (2)
  - Blood pressure decreased [Recovering/Resolving]
  - Acute kidney injury [Recovering/Resolving]

NARRATIVE: CASE EVENT DATE: 20131228
